FAERS Safety Report 17934872 (Version 1)
Quarter: 2020Q2

REPORT INFORMATION
  Report Type: Report from Study
  Country: US (occurrence: US)
  Receive Date: 20200624
  Receipt Date: 20200624
  Transmission Date: 20200714
  Serious: Yes (Hospitalization, Other)
  Sender: FDA-Public Use
  Company Number: US-ROCHE-2606921

PATIENT
  Sex: Female

DRUGS (18)
  1. RITUXAN [Suspect]
     Active Substance: RITUXIMAB
     Route: 042
     Dates: start: 20180209
  2. LORATADINE;PARACETAMOL;PHENYLEPHRINE HYDROCHLORIDE [Concomitant]
     Route: 065
  3. RITUXAN [Suspect]
     Active Substance: RITUXIMAB
     Route: 042
     Dates: start: 20180511
  4. RITUXAN [Suspect]
     Active Substance: RITUXIMAB
     Route: 042
     Dates: start: 20180809
  5. GABAPENTINE [Concomitant]
     Active Substance: GABAPENTIN
     Dosage: TAKE 2 CAP. 3 TIMES A DAY
     Route: 065
  6. TYLENOL [Concomitant]
     Active Substance: ACETAMINOPHEN
     Route: 048
  7. SOLU-MEDROL [Concomitant]
     Active Substance: METHYLPREDNISOLONE SODIUM SUCCINATE
     Route: 042
  8. RITUXAN [Suspect]
     Active Substance: RITUXIMAB
     Indication: MULTIPLE SCLEROSIS
     Dosage: EVERY 3 MONTHS
     Route: 042
  9. METHYLPREDNISOLONE. [Concomitant]
     Active Substance: METHYLPREDNISOLONE
     Route: 065
  10. TRIAMCINOLONE ACETONIDE. [Concomitant]
     Active Substance: TRIAMCINOLONE ACETONIDE
     Route: 065
  11. SUMATRIPTAN. [Concomitant]
     Active Substance: SUMATRIPTAN
     Route: 065
  12. FLUTICASONE. [Concomitant]
     Active Substance: FLUTICASONE
     Dosage: SPRAY 1 PUFF INTO EACH NOSTRIL 1 TIME PER DAY
     Route: 065
  13. FOLIC ACID. [Concomitant]
     Active Substance: FOLIC ACID
     Route: 065
  14. AMLODIPINE [Concomitant]
     Active Substance: AMLODIPINE BESYLATE
     Route: 065
  15. LEVOTHYROXINE. [Concomitant]
     Active Substance: LEVOTHYROXINE
     Route: 065
  16. METHOTREXATE. [Concomitant]
     Active Substance: METHOTREXATE
     Route: 065
  17. BACLOFEN. [Concomitant]
     Active Substance: BACLOFEN
     Route: 065
  18. WARFARIN [Concomitant]
     Active Substance: WARFARIN

REACTIONS (14)
  - Herpes zoster [Recovered/Resolved]
  - Pain in extremity [Unknown]
  - Deafness [Unknown]
  - Hypoaesthesia [Unknown]
  - Nervousness [Unknown]
  - Contusion [Unknown]
  - Gait disturbance [Unknown]
  - Headache [Unknown]
  - Intentional product use issue [Unknown]
  - Appetite disorder [Unknown]
  - Fatigue [Unknown]
  - Off label use [Unknown]
  - Dizziness [Unknown]
  - Asthenia [Unknown]
